FAERS Safety Report 20526118 (Version 6)
Quarter: 2024Q4

REPORT INFORMATION
  Report Type: Spontaneous
  Country: US (occurrence: US)
  Receive Date: 20220228
  Receipt Date: 20241119
  Transmission Date: 20250115
  Serious: Yes (Other)
  Sender: PFIZER
  Company Number: US-PFIZER INC-202200293070

PATIENT
  Age: 64 Year
  Sex: Female
  Weight: 56.245 kg

DRUGS (2)
  1. IBRANCE [Suspect]
     Active Substance: PALBOCICLIB
     Indication: Breast cancer female
     Dosage: TAKE 1 TAB DAILY FOR 21 DAYS ON, 7 DAYS OFF, CYCLE EVERY 28 DAYS
     Route: 048
  2. IBRANCE [Suspect]
     Active Substance: PALBOCICLIB
     Indication: Hormone receptor positive breast cancer

REACTIONS (4)
  - Hip arthroplasty [Unknown]
  - Malignant pleural effusion [Unknown]
  - Aphonia [Unknown]
  - Confusional state [Unknown]
